FAERS Safety Report 9815280 (Version 12)
Quarter: 2020Q2

REPORT INFORMATION
  Report Type: Report from Study
  Country: PL (occurrence: PL)
  Receive Date: 20140114
  Receipt Date: 20200411
  Transmission Date: 20200714
  Serious: Yes (Hospitalization, Other)
  Sender: FDA-Public Use
  Company Number: PL-AMGEN-POLCT2014001885

PATIENT
  Age: 65 Year
  Sex: Female

DRUGS (28)
  1. ETANERCEPT [Suspect]
     Active Substance: ETANERCEPT
     Indication: RHEUMATOID ARTHRITIS
     Dosage: 50 MILLIGRAM, QWK (LAST DOSE PRIOR TO ONSET OF EVENT, 28NOV2013)
     Route: 058
     Dates: start: 20120529
  2. METHOTREXATE. [Concomitant]
     Active Substance: METHOTREXATE
     Indication: RHEUMATOID ARTHRITIS
     Dosage: 10 MILLIGRAM, QWK
     Route: 048
     Dates: start: 201202, end: 20121101
  3. METHOTREXATE. [Concomitant]
     Active Substance: METHOTREXATE
     Dosage: 20 MILLIGRAM, QWK
     Route: 048
     Dates: start: 20121128
  4. CHOLECALCIFEROL [Concomitant]
     Active Substance: CHOLECALCIFEROL
     Dosage: 800 INTERNATIONAL UNIT, QD
     Route: 048
     Dates: start: 201201
  5. TELMISARTAN. [Concomitant]
     Active Substance: TELMISARTAN
     Indication: HYPERTENSION
     Dosage: 40 MILLIGRAM, QD
     Route: 048
     Dates: start: 20130709
  6. LEFLUNOMIDE. [Concomitant]
     Active Substance: LEFLUNOMIDE
     Indication: RHEUMATOID ARTHRITIS
     Dosage: 20 MILLIGRAM, QD
     Route: 048
     Dates: start: 201002, end: 20121024
  7. QUINAPRIL HYDROCHLORIDE. [Concomitant]
     Active Substance: QUINAPRIL HYDROCHLORIDE
     Indication: HYPERTENSION
     Dosage: UNK
     Route: 048
  8. MEBEVERINE HYDROCHLORIDE [Concomitant]
     Active Substance: MEBEVERINE HYDROCHLORIDE
     Indication: DYSPEPSIA
     Dosage: 200 MILLIGRAM, BID
     Route: 048
     Dates: start: 20130309, end: 20130330
  9. ZOCOR [Concomitant]
     Active Substance: SIMVASTATIN
     Indication: HYPERLIPIDAEMIA
     Dosage: 20 MILLIGRAM, QD
     Route: 048
     Dates: start: 200305
  10. FAMOTIDINE. [Concomitant]
     Active Substance: FAMOTIDINE
     Indication: DYSPEPSIA
     Dosage: 40 MILLIGRAM
     Route: 048
     Dates: start: 20130221, end: 20130320
  11. ENOXAPARIN SODIUM. [Concomitant]
     Active Substance: ENOXAPARIN SODIUM
     Dosage: 40 MILLIGRAM, QD
     Route: 058
     Dates: start: 20120708, end: 20120807
  12. PIROXICAM. [Concomitant]
     Active Substance: PIROXICAM
     Indication: NEURALGIA
     Dosage: 20 MILLIGRAM, QD
     Route: 030
     Dates: start: 20130312, end: 20130312
  13. CHOLECALCIFEROL [Concomitant]
     Active Substance: CHOLECALCIFEROL
     Indication: OSTEOPOROSIS
     Dosage: 1500 INTERNATIONAL UNIT, QD
     Dates: start: 201201
  14. TRIMETAZIDINE HYDROCHLORIDE [Concomitant]
     Active Substance: TRIMETAZIDINE DIHYDROCHLORIDE
     Indication: CORONARY ARTERY DISEASE
     Dosage: 35 MILLIGRAM, BID
     Route: 048
     Dates: start: 201109, end: 20130708
  15. METHYLPREDNISOLONE. [Concomitant]
     Active Substance: METHYLPREDNISOLONE
     Indication: RHEUMATOID ARTHRITIS
     Dosage: 2 MG, DAILY
     Route: 048
     Dates: start: 201201, end: 20120604
  16. BETAXOLOL HYDROCHLORIDE. [Concomitant]
     Active Substance: BETAXOLOL HYDROCHLORIDE
     Indication: HYPERTENSION
     Dosage: UNK
     Route: 048
  17. DICLOFENAC [Concomitant]
     Active Substance: DICLOFENAC
     Indication: SCIATICA
     Dosage: 75 MILLIGRAM
     Route: 030
     Dates: start: 20121122, end: 20121201
  18. CALCIUM [Concomitant]
     Active Substance: CALCIUM
     Dosage: UNK
  19. ASPIRIN. [Concomitant]
     Active Substance: ASPIRIN
     Indication: CORONARY ARTERY DISEASE
     Dosage: 75 MILLIGRAM, QD
     Route: 048
     Dates: start: 200305
  20. PANTOPRAZOL [Concomitant]
     Active Substance: PANTOPRAZOLE SODIUM
     Dosage: 20 MILLIGRAM, QD
     Route: 048
     Dates: start: 201002, end: 20130221
  21. METHYLPREDNISOLONE. [Concomitant]
     Active Substance: METHYLPREDNISOLONE
     Indication: BURSITIS
     Dosage: 40 MILLIGRAM, (SINGLE)
     Dates: start: 20120919, end: 20120919
  22. SUCRALFATE. [Concomitant]
     Active Substance: SUCRALFATE
     Indication: DYSPEPSIA
     Dosage: 1 GRAM, QID
     Route: 048
     Dates: start: 20130221, end: 20130228
  23. METHOTREXATE. [Concomitant]
     Active Substance: METHOTREXATE
     Dosage: 15 MILLIGRAM, QWK
     Route: 048
     Dates: start: 20121101, end: 20121128
  24. FOLIC ACID. [Concomitant]
     Active Substance: FOLIC ACID
     Dosage: 15 MILLIGRAM, QWK
     Route: 048
     Dates: start: 200812
  25. PANTOPRAZOL [Concomitant]
     Active Substance: PANTOPRAZOLE SODIUM
     Dosage: 40 MILLIGRAM, QD
     Route: 048
     Dates: start: 20130222
  26. AZAPENTACENE [Concomitant]
     Dosage: UNK
  27. MAGNESIUM [Concomitant]
     Active Substance: MAGNESIUM
     Dosage: UNK
  28. NEBIVOLOL. [Concomitant]
     Active Substance: NEBIVOLOL
     Indication: HYPERTENSION
     Dosage: 2.5 MILLIGRAM, QD
     Route: 048
     Dates: start: 20130709

REACTIONS (2)
  - Lung adenocarcinoma [Recovered/Resolved with Sequelae]
  - Pulmonary mass [Recovered/Resolved]

NARRATIVE: CASE EVENT DATE: 20131202
